FAERS Safety Report 20925884 (Version 2)
Quarter: 2022Q2

REPORT INFORMATION
  Report Type: Report from Study
  Country: US (occurrence: US)
  Receive Date: 20220607
  Receipt Date: 20220620
  Transmission Date: 20220721
  Serious: Yes (Other)
  Sender: FDA-Public Use
  Company Number: US-SUNOVION-2022SUN001704

PATIENT
  Age: 59 Year
  Sex: Male
  Weight: 89.4 kg

DRUGS (18)
  1. KYNMOBI [Suspect]
     Active Substance: APOMORPHINE HYDROCHLORIDE
     Indication: Parkinson^s disease
     Dosage: UNK
     Route: 060
     Dates: start: 20220530, end: 20220530
  2. KYNMOBI [Suspect]
     Active Substance: APOMORPHINE HYDROCHLORIDE
     Dosage: 10 MG,(MAX DOSE X 5QD) AS NECESSARY
     Route: 060
  3. KYNMOBI [Suspect]
     Active Substance: APOMORPHINE HYDROCHLORIDE
     Dosage: 15 MG,(MAX DOSE X 5QD) AS NECESSARY
     Route: 060
  4. KYNMOBI [Suspect]
     Active Substance: APOMORPHINE HYDROCHLORIDE
     Dosage: 20 MG,(MAX DOSE X 5QD) AS NECESSARY
     Route: 060
  5. KYNMOBI [Suspect]
     Active Substance: APOMORPHINE HYDROCHLORIDE
     Dosage: 25 MG,(MAX DOSE X 5QD) AS NECESSARY
     Route: 060
     Dates: start: 20220415
  6. KYNMOBI [Suspect]
     Active Substance: APOMORPHINE HYDROCHLORIDE
     Dosage: 30 MG,(MAX DOSE X 5QD) AS NECESSARY
     Route: 060
  7. ATROPINE SULFATE [Concomitant]
     Active Substance: ATROPINE SULFATE
     Indication: Drooling
     Dosage: 1 %,(2 DROPS EVERY 6 HOURS) AS NECESSARY
     Route: 060
  8. BACLOFEN [Concomitant]
     Active Substance: BACLOFEN
     Dosage: UNK, (DURATION 10MINUTES)
     Route: 065
     Dates: start: 20210615
  9. CARBIDOPA AND LEVODOPA [Concomitant]
     Active Substance: CARBIDOPA\LEVODOPA
     Dosage: UNK, (3-3-2)
     Route: 065
     Dates: start: 20210615
  10. CYANOCOBALAMIN [Concomitant]
     Active Substance: CYANOCOBALAMIN
     Dosage: 0.5 MG, QD
     Route: 048
  11. CLONAZEPAM [Concomitant]
     Active Substance: CLONAZEPAM
     Dosage: UNK,(DURATION 15MINUTES)
     Route: 065
     Dates: start: 20210615
  12. METHADONE [Concomitant]
     Active Substance: METHADONE HYDROCHLORIDE
     Dosage: UNK, (DURATION 10MITUNES)
     Route: 065
     Dates: start: 20210615
  13. MINERALS\VITAMINS [Concomitant]
     Active Substance: MINERALS\VITAMINS
     Dosage: UNK, QD
     Route: 048
  14. NUPLAZID [Concomitant]
     Active Substance: PIMAVANSERIN TARTRATE
     Dosage: UNK
     Route: 065
     Dates: start: 20210615
  15. SINEMET [Concomitant]
     Active Substance: CARBIDOPA\LEVODOPA
     Dosage: 25-250MG, QID
     Route: 048
  16. TETRABENAZINE [Concomitant]
     Active Substance: TETRABENAZINE
     Dosage: UNK, (DURATION 30-40MINUTES)
     Route: 065
     Dates: start: 20210615
  17. TYLENOL WITH CODEINE [Concomitant]
     Active Substance: ACETAMINOPHEN\CODEINE PHOSPHATE
     Dosage: 300-30 MG (1 TABLET BY MOUTH)
     Route: 048
  18. VESICARE [Concomitant]
     Active Substance: SOLIFENACIN SUCCINATE
     Dosage: UNK
     Route: 065
     Dates: start: 20210615

REACTIONS (6)
  - Syncope [Recovered/Resolved with Sequelae]
  - Heart rate decreased [Recovered/Resolved with Sequelae]
  - Pallor [Recovered/Resolved with Sequelae]
  - Blood pressure decreased [Recovered/Resolved with Sequelae]
  - Vomiting [Recovered/Resolved with Sequelae]
  - Confusional state [Recovered/Resolved with Sequelae]

NARRATIVE: CASE EVENT DATE: 20220530
